FAERS Safety Report 7543030-3 (Version None)
Quarter: 2011Q2

REPORT INFORMATION
  Report Type: 
  Country: None (occurrence: None)
  Receive Date: 20110613
  Receipt Date: 20110607
  Transmission Date: 20111010
  Serious: Yes (Death, Hospitalization, Other)
  Sender: FDA-Public Use
  Company Number: PHHY2011BR49706

PATIENT
  Sex: Male

DRUGS (1)
  1. DIOVAN HCT [Suspect]
     Indication: HYPERTENSION
     Dosage: 80 MG OF VALSARTAN AND 12.5 MG OF HYDROCHLOROTHIAZIDE, 1 TABLET AT NIGHT
     Dates: start: 20090101

REACTIONS (6)
  - DECREASED APPETITE [None]
  - PNEUMONIA [None]
  - DEATH [None]
  - VEIN DISORDER [None]
  - GENERAL PHYSICAL HEALTH DETERIORATION [None]
  - INFECTION [None]
